FAERS Safety Report 5169342-9 (Version None)
Quarter: 2006Q4

REPORT INFORMATION
  Report Type: 
  Country: None (occurrence: None)
  Receive Date: 20061201
  Receipt Date: 20061127
  Transmission Date: 20070319
  Serious: Yes (Other)
  Sender: FDA-Public Use
  Company Number: DEWYE653427NOV06

PATIENT
  Sex: Male

DRUGS (2)
  1. RAPAMUNE [Suspect]
     Route: 048
     Dates: start: 20010101
  2. FENOFIBRATE [Concomitant]

REACTIONS (3)
  - BLOOD TRIGLYCERIDES INCREASED [None]
  - CEREBROVASCULAR ACCIDENT [None]
  - WEGENER'S GRANULOMATOSIS [None]
